FAERS Safety Report 6581073-7 (Version None)
Quarter: 2010Q1

REPORT INFORMATION
  Report Type: 
  Country: None (occurrence: None)
  Receive Date: 20100215
  Receipt Date: 20100203
  Transmission Date: 20100710
  Serious: Yes (Hospitalization)
  Sender: FDA-Public Use
  Company Number: PHHY2009GB46571

PATIENT
  Sex: Female

DRUGS (3)
  1. CLOZARIL [Suspect]
     Indication: SCHIZOPHRENIA
     Dosage: 200 MG
     Route: 048
     Dates: start: 20090803, end: 20091022
  2. CLOZARIL [Suspect]
     Dosage: 150 MG AM AND 200 MG PM
     Dates: start: 20091124
  3. CLOZARIL [Suspect]
     Dosage: 75 MG, BID
     Dates: start: 20091226

REACTIONS (3)
  - ALCOHOL POISONING [None]
  - GRAND MAL CONVULSION [None]
  - LOSS OF CONSCIOUSNESS [None]
